FAERS Safety Report 18581948 (Version 2)
Quarter: 2021Q1

REPORT INFORMATION
  Report Type: Spontaneous
  Country: US (occurrence: US)
  Receive Date: 20201204
  Receipt Date: 20210203
  Transmission Date: 20210419
  Serious: No
  Sender: FDA-Public Use
  Company Number: US-PFIZER INC-2020478146

PATIENT
  Age: 67 Year
  Sex: Female

DRUGS (2)
  1. IBRANCE [Suspect]
     Active Substance: PALBOCICLIB
     Dosage: 125 MG
     Dates: start: 20201102
  2. IBRANCE [Suspect]
     Active Substance: PALBOCICLIB
     Dosage: 100 MG, (CURRENTLY ON HER 1ST WEEK OF MEDS)
     Dates: start: 20201110

REACTIONS (2)
  - White blood cell count decreased [Unknown]
  - Pain [Unknown]

NARRATIVE: CASE EVENT DATE: 2020
